FAERS Safety Report 7345396-6 (Version None)
Quarter: 2011Q1

REPORT INFORMATION
  Report Type: 
  Country: None (occurrence: None)
  Receive Date: 20110310
  Receipt Date: 20110309
  Transmission Date: 20110831
  Serious: Yes (Hospitalization)
  Sender: FDA-Public Use
  Company Number: US-AMGEN-USASP2010007794

PATIENT
  Age: 81 Year
  Sex: Male
  Weight: 90.703 kg

DRUGS (4)
  1. ATENOLOL [Concomitant]
     Dosage: 50 MG, QD
  2. PREDNISONE [Concomitant]
  3. NPLATE [Suspect]
     Indication: IDIOPATHIC THROMBOCYTOPENIC PURPURA
     Dosage: 180 A?G, QWK
     Route: 058
     Dates: start: 20101012
  4. ABILIFY [Concomitant]
     Dosage: 2 MG, QD

REACTIONS (1)
  - PLATELET COUNT DECREASED [None]
